FAERS Safety Report 17272631 (Version 6)
Quarter: 2020Q4

REPORT INFORMATION
  Report Type: Spontaneous
  Country: US (occurrence: US)
  Receive Date: 20200115
  Receipt Date: 20201120
  Transmission Date: 20210113
  Serious: No
  Sender: FDA-Public Use
  Company Number: US-PFIZER INC-2020014714

PATIENT
  Age: 52 Year
  Sex: Female

DRUGS (8)
  1. DOCETAXEL. [Suspect]
     Active Substance: DOCETAXEL
     Indication: HER2 POSITIVE BREAST CANCER
     Dosage: 113 MG, CYCLIC (06 CYCLES, EVERY THREE WEEKS)
     Dates: start: 20161013, end: 20170126
  2. TRASTUZUMAB. [Concomitant]
     Active Substance: TRASTUZUMAB
     Indication: CHEMOTHERAPY
     Dosage: UNK, CYCLIC (6 CYCLES)
  3. PARAPLATIN [Concomitant]
     Active Substance: CARBOPLATIN
     Indication: CHEMOTHERAPY
     Dosage: UNK, CYCLIC (6 CYCLES)
  4. GRANISETRON [Concomitant]
     Active Substance: GRANISETRON
     Dosage: UNK
  5. TRASTUZUMAB. [Concomitant]
     Active Substance: TRASTUZUMAB
     Dosage: UNK, CYCLIC (12 CYCLES)
  6. PERTUZUMAB. [Concomitant]
     Active Substance: PERTUZUMAB
     Indication: CHEMOTHERAPY
     Dosage: UNK, CYCLIC (6 CYCLES)
  7. DEXAMETHASONE. [Concomitant]
     Active Substance: DEXAMETHASONE
     Dosage: UNK
  8. NEULASTA [Concomitant]
     Active Substance: PEGFILGRASTIM
     Dosage: UNK

REACTIONS (5)
  - Madarosis [Not Recovered/Not Resolved]
  - Hair texture abnormal [Not Recovered/Not Resolved]
  - Hair disorder [Not Recovered/Not Resolved]
  - Alopecia [Not Recovered/Not Resolved]
  - Hair colour changes [Not Recovered/Not Resolved]

NARRATIVE: CASE EVENT DATE: 201611
